FAERS Safety Report 20329971 (Version 2)
Quarter: 2022Q1

REPORT INFORMATION
  Report Type: Spontaneous
  Country: US (occurrence: None)
  Receive Date: 20220113
  Receipt Date: 20220217
  Transmission Date: 20220423
  Serious: No
  Sender: FDA-Public Use
  Company Number: 2021A875930

PATIENT
  Age: 53 Year
  Sex: Male
  Weight: 132.9 kg

DRUGS (3)
  1. BYDUREON BCISE [Suspect]
     Active Substance: EXENATIDE
     Indication: Type 2 diabetes mellitus
     Route: 058
     Dates: start: 2020, end: 20211004
  2. BYDUREON BCISE [Suspect]
     Active Substance: EXENATIDE
     Indication: Type 2 diabetes mellitus
     Route: 058
     Dates: start: 202110
  3. OZEMPIC [Suspect]
     Active Substance: SEMAGLUTIDE
     Route: 065

REACTIONS (6)
  - Skin hypertrophy [Unknown]
  - Injection site mass [Unknown]
  - Abdominal discomfort [Unknown]
  - Incorrect dose administered by device [Unknown]
  - Device failure [Unknown]
  - Device leakage [Unknown]

NARRATIVE: CASE EVENT DATE: 20210101
